FAERS Safety Report 8841691 (Version 2)
Quarter: 2012Q4

REPORT INFORMATION
  Report Type: 
  Country: US (occurrence: US)
  Receive Date: 20121015
  Receipt Date: 20121113
  Transmission Date: 20130627
  Serious: Yes (Death)
  Sender: FDA-Public Use
  Company Number: US-ASTELLAS-2012US010131

PATIENT
  Sex: Female

DRUGS (3)
  1. TARCEVA [Suspect]
     Indication: LUNG NEOPLASM MALIGNANT
     Dosage: 150 mg, UID/QD
     Route: 048
     Dates: start: 20120625
  2. CLINDAGEL [Concomitant]
     Indication: RASH
     Dosage: 1 %, UID/QD
     Route: 061
     Dates: start: 20120713
  3. DOXYCYCLINE [Concomitant]
     Indication: RASH
     Dosage: 100 mg, UID/QD
     Route: 048
     Dates: start: 20120727

REACTIONS (1)
  - Death [Fatal]
